FAERS Safety Report 4340297-X (Version None)
Quarter: 2004Q2

REPORT INFORMATION
  Report Type: 
  Country: None (occurrence: None)
  Receive Date: 20040401
  Receipt Date: 20040315
  Transmission Date: 20050107
  Serious: Yes (Hospitalization)
  Sender: FDA-Public Use
  Company Number: 2004SA000059

PATIENT
  Sex: Female

DRUGS (1)
  1. THYMOGLOBULIN [Suspect]

REACTIONS (3)
  - COMPLICATIONS OF TRANSPLANT SURGERY [None]
  - GRAFT THROMBOSIS [None]
  - NECROSIS [None]
